FAERS Safety Report 8462752-3 (Version None)
Quarter: 2012Q2

REPORT INFORMATION
  Report Type: 
  Country: None (occurrence: None)
  Receive Date: 20120625
  Receipt Date: 20120612
  Transmission Date: 20120825
  Serious: No
  Sender: FDA-Public Use
  Company Number: US-ASTRAZENECA-2012SE39218

PATIENT
  Age: 38 Year
  Sex: Female
  Weight: 64.7 kg

DRUGS (6)
  1. POTASSIUM ACETATE [Concomitant]
     Route: 048
  2. NEXIUM [Suspect]
     Indication: GASTRITIS
     Route: 048
  3. VITAMIN D [Concomitant]
  4. PHENOBARBITAL TAB [Concomitant]
  5. VITAMIN B-12 [Concomitant]
  6. DIAMOX [Concomitant]

REACTIONS (3)
  - LIVER DISORDER [None]
  - INCREASED APPETITE [None]
  - OFF LABEL USE [None]
